FAERS Safety Report 13559881 (Version 4)
Quarter: 2019Q1

REPORT INFORMATION
  Report Type: Spontaneous
  Country: US (occurrence: US)
  Receive Date: 20170518
  Receipt Date: 20190318
  Transmission Date: 20190417
  Serious: Yes (Other)
  Sender: FDA-Public Use
  Company Number: US-PFIZER INC-2017220354

PATIENT
  Age: 59 Year
  Sex: Male

DRUGS (2)
  1. LYRICA [Suspect]
     Active Substance: PREGABALIN
     Indication: MUSCULOSKELETAL PAIN
     Dosage: 300 MG, 2X/DAY (2 CAPSULES 2 TIMES DAILY)
  2. LYRICA [Suspect]
     Active Substance: PREGABALIN
     Dosage: 300 MG, 3X/DAY (2 CAPSULES 3 TIMES DAILY)

REACTIONS (4)
  - Drug effective for unapproved indication [Unknown]
  - Myocardial infarction [Unknown]
  - Intentional overdose [Unknown]
  - Prescribed overdose [Unknown]
